FAERS Safety Report 8740305 (Version 6)
Quarter: 2014Q2

REPORT INFORMATION
  Report Type: Spontaneous
  Country: US (occurrence: US)
  Receive Date: 20120823
  Receipt Date: 20140606
  Transmission Date: 20141212
  Serious: Yes (Hospitalization, Other)
  Sender: FDA-Public Use
  Company Number: US-009507513-1208USA003052

PATIENT
  Sex: Female
  Weight: 62.36 kg

DRUGS (4)
  1. FOSAMAX [Suspect]
     Indication: OSTEOPOROSIS
     Dosage: 70 MG, QW
     Route: 048
     Dates: start: 20090513, end: 20090624
  2. FOSAMAX [Suspect]
     Indication: OSTEOPENIA
  3. BONIVA [Suspect]
     Indication: OSTEOPOROSIS
     Dosage: 150 MG, QM
     Route: 048
     Dates: start: 20090325, end: 201002
  4. BONIVA [Suspect]
     Indication: OSTEOPENIA

REACTIONS (43)
  - Osteonecrosis of jaw [Not Recovered/Not Resolved]
  - Jaw operation [Unknown]
  - Tooth abscess [Not Recovered/Not Resolved]
  - Alveolar osteitis [Not Recovered/Not Resolved]
  - Temporomandibular joint syndrome [Unknown]
  - Impaired healing [Unknown]
  - Influenza like illness [Unknown]
  - Osteopenia [Unknown]
  - Osteoporosis [Unknown]
  - Procedural pain [Unknown]
  - Tooth fracture [Unknown]
  - Tooth abscess [Recovering/Resolving]
  - Dental fistula [Unknown]
  - Adenoidal hypertrophy [Unknown]
  - Intervertebral disc degeneration [Unknown]
  - Cerebral small vessel ischaemic disease [Unknown]
  - Large intestinal ulcer [Unknown]
  - Large intestine polyp [Unknown]
  - Diverticulum [Unknown]
  - Ear infection [Unknown]
  - Irritable bowel syndrome [Unknown]
  - Intervertebral disc degeneration [Unknown]
  - Spinal osteoarthritis [Unknown]
  - Anaemia [Unknown]
  - Osteoarthritis [Unknown]
  - Chronic obstructive pulmonary disease [Not Recovered/Not Resolved]
  - Hypothyroidism [Unknown]
  - Migraine [Unknown]
  - Depression [Unknown]
  - Attention deficit/hyperactivity disorder [Unknown]
  - Sleep disorder [Unknown]
  - Restlessness [Unknown]
  - Debridement [Unknown]
  - Osteomyelitis [Unknown]
  - Gastric ulcer [Unknown]
  - Headache [Unknown]
  - Nausea [Unknown]
  - Vomiting [Unknown]
  - Back pain [Not Recovered/Not Resolved]
  - Drug ineffective [Unknown]
  - Treatment failure [Unknown]
  - Malaise [Unknown]
  - Drug ineffective [Unknown]
